FAERS Safety Report 9830499 (Version 1)
Quarter: 2014Q1

REPORT INFORMATION
  Report Type: Spontaneous
  Country: US (occurrence: US)
  Receive Date: 20140120
  Receipt Date: 20140120
  Transmission Date: 20141002
  Serious: Yes (Death)
  Sender: FDA-Public Use
  Company Number: US-PFIZER INC-2014008216

PATIENT
  Age: 71 Year
  Sex: Female

DRUGS (4)
  1. DEXTROMETHORPHAN HBR [Suspect]
     Route: 048
  2. PAROXETINE [Suspect]
     Route: 048
  3. NORTRIPTYLINE [Suspect]
     Route: 048
  4. DIAZEPAM [Suspect]
     Route: 048

REACTIONS (1)
  - Completed suicide [Fatal]
